FAERS Safety Report 6971381 (Version 8)
Quarter: 2012Q4

REPORT INFORMATION
  Report Type: 
  Country: US (occurrence: US)
  Receive Date: 20090417
  Receipt Date: 20120918
  Transmission Date: 20130627
  Serious: No
  Sender: FDA-Public Use
  Company Number: US-ASTRAZENECA-2008UW03276

PATIENT
  Age: 71 Year
  Sex: Female
  Weight: 70.3 kg

DRUGS (20)
  1. SEROQUEL [Suspect]
     Indication: DEPRESSION
     Route: 048
     Dates: start: 2006
  2. SEROQUEL [Suspect]
     Indication: SLEEP DISORDER
     Route: 048
     Dates: start: 2006
  3. SEROQUEL [Suspect]
     Indication: INSOMNIA
     Route: 048
     Dates: start: 2006
  4. SEROQUEL [Suspect]
     Indication: DEPRESSION
     Route: 048
  5. SEROQUEL [Suspect]
     Indication: SLEEP DISORDER
     Route: 048
  6. SEROQUEL [Suspect]
     Indication: INSOMNIA
     Route: 048
  7. SEROQUEL [Suspect]
     Indication: DEPRESSION
     Route: 048
  8. SEROQUEL [Suspect]
     Indication: SLEEP DISORDER
     Route: 048
  9. SEROQUEL [Suspect]
     Indication: INSOMNIA
     Route: 048
  10. SEROQUEL [Suspect]
     Indication: DEPRESSION
     Route: 048
  11. SEROQUEL [Suspect]
     Indication: SLEEP DISORDER
     Route: 048
  12. SEROQUEL [Suspect]
     Indication: INSOMNIA
     Route: 048
  13. SEROQUEL [Suspect]
     Indication: DEPRESSION
     Route: 048
  14. SEROQUEL [Suspect]
     Indication: SLEEP DISORDER
     Route: 048
  15. SEROQUEL [Suspect]
     Indication: INSOMNIA
     Route: 048
  16. LUNESTA [Suspect]
     Route: 065
     Dates: start: 2007
  17. LUNESTA [Suspect]
     Route: 065
  18. ATENOLOL [Concomitant]
     Indication: HYPERTENSION
     Route: 048
  19. ENALAPRIL [Concomitant]
     Indication: BLOOD PRESSURE
     Route: 065
  20. ENALAPRIL [Concomitant]
     Indication: HYPERTENSION
     Route: 065

REACTIONS (17)
  - Fall [Unknown]
  - Platelet count increased [Unknown]
  - Insomnia [Unknown]
  - Throat irritation [Unknown]
  - Depressed mood [Unknown]
  - Feeling abnormal [Unknown]
  - Drug dose omission [Unknown]
  - Nervousness [Unknown]
  - Cough [Unknown]
  - Weight increased [Not Recovered/Not Resolved]
  - Fatigue [Not Recovered/Not Resolved]
  - Abnormal dreams [Unknown]
  - Abnormal dreams [Unknown]
  - Somnolence [Not Recovered/Not Resolved]
  - Therapeutic response unexpected [Unknown]
  - Intentional drug misuse [Unknown]
  - Off label use [Unknown]
